FAERS Safety Report 6171227-6 (Version None)
Quarter: 2009Q2

REPORT INFORMATION
  Report Type: 
  Country: None (occurrence: None)
  Receive Date: 20090429
  Receipt Date: 20090420
  Transmission Date: 20091009
  Serious: Yes (Hospitalization)
  Sender: FDA-Public Use
  Company Number: FR-ABBOTT-04P-056-0256857-00

PATIENT
  Sex: Female
  Weight: 54 kg

DRUGS (8)
  1. HUMIRA [Suspect]
     Indication: RHEUMATOID ARTHRITIS
     Route: 058
     Dates: start: 20040401
  2. HUMIRA [Suspect]
  3. AUGMENTIN '125' [Concomitant]
     Indication: OSTEITIS
     Dates: start: 20040119
  4. AUGMENTIN '125' [Concomitant]
  5. GENTAMICIN [Concomitant]
     Indication: OSTEITIS
  6. PYOSTACINE [Concomitant]
     Indication: OSTEITIS
  7. OFLOXACIN [Concomitant]
     Indication: OSTEITIS
  8. COMMERCIAL HUMIRA [Concomitant]
     Indication: RHEUMATOID ARTHRITIS
     Route: 058
     Dates: start: 20031027

REACTIONS (1)
  - CELLULITIS [None]
